FAERS Safety Report 21410401 (Version 2)
Quarter: 2022Q4

REPORT INFORMATION
  Report Type: Report from Study
  Country: US (occurrence: US)
  Receive Date: 20221005
  Receipt Date: 20221203
  Transmission Date: 20230113
  Serious: No
  Sender: FDA-Public Use
  Company Number: US-ABBVIE-4134620

PATIENT
  Sex: Female
  Weight: 47.627 kg

DRUGS (2)
  1. RINVOQ [Suspect]
     Active Substance: UPADACITINIB
     Indication: Colitis ulcerative
     Dosage: STRENGTH: 15 MG
     Route: 048
     Dates: start: 20220726, end: 20221016
  2. RINVOQ [Suspect]
     Active Substance: UPADACITINIB
     Indication: Colitis ulcerative
     Dosage: STRENGTH: 15 MG
     Route: 048

REACTIONS (3)
  - Bronchitis [Recovered/Resolved]
  - Incorrect dose administered [Unknown]
  - Blood cholesterol abnormal [Unknown]
